FAERS Safety Report 6194371-6 (Version None)
Quarter: 2009Q2

REPORT INFORMATION
  Report Type: 
  Country: None (occurrence: None)
  Receive Date: 20090515
  Receipt Date: 20090505
  Transmission Date: 20091009
  Serious: Yes (Hospitalization)
  Sender: FDA-Public Use
  Company Number: 1000006215

PATIENT
  Age: 72 Year
  Sex: Female

DRUGS (2)
  1. MEMANTINE HCL [Suspect]
     Dosage: 60 MG (10 MG, 6 IN 1 D) ORAL
     Route: 048
     Dates: start: 20081104, end: 20081112
  2. EVISTA [Concomitant]

REACTIONS (3)
  - ACCIDENTAL OVERDOSE [None]
  - MEDICATION ERROR [None]
  - RECTAL HAEMORRHAGE [None]
